FAERS Safety Report 5678098-2 (Version None)
Quarter: 2008Q1

REPORT INFORMATION
  Report Type: 
  Country: None (occurrence: None)
  Receive Date: 20080319
  Receipt Date: 20080128
  Transmission Date: 20080703
  Serious: Yes (Other)
  Sender: FDA-Public Use
  Company Number: US022744

PATIENT
  Age: 59 Year
  Sex: Male

DRUGS (1)
  1. MODAFINIL [Suspect]
     Indication: SLEEP APNOEA SYNDROME
     Dosage: ORAL
     Route: 048

REACTIONS (2)
  - BLINDNESS TRANSIENT [None]
  - MIGRAINE [None]
